FAERS Safety Report 9140210 (Version 2)
Quarter: 2013Q2

REPORT INFORMATION
  Report Type: Report from Study
  Country: FR (occurrence: FR)
  Receive Date: 20130305
  Receipt Date: 20130411
  Transmission Date: 20140414
  Serious: Yes (Hospitalization)
  Sender: FDA-Public Use
  Company Number: FR-PFIZER INC-2013061079

PATIENT
  Age: 72 Year
  Sex: Male

DRUGS (5)
  1. AXITINIB [Suspect]
     Indication: COLORECTAL CANCER METASTATIC
     Dosage: 5 MG, 2X/DAY
     Route: 048
     Dates: start: 20120127, end: 20120202
  2. AXITINIB [Suspect]
     Dosage: 10 MG, 1X/DAY
     Route: 048
     Dates: start: 20130127, end: 20130214
  3. CAMPTO [Suspect]
     Indication: COLORECTAL CANCER METASTATIC
     Dosage: 360 MG/M2 1/14 DAYS
     Dates: start: 20120309, end: 20130201
  4. FLUOROURACIL [Suspect]
     Indication: COLORECTAL CANCER METASTATIC
     Dosage: 4800 MG 1/14 DAYS
     Route: 040
     Dates: start: 20120309, end: 20130203
  5. FLUOROURACIL [Suspect]
     Dosage: 800 MG 1/14 DAYS
     Route: 042
     Dates: start: 20120309, end: 20130203

REACTIONS (4)
  - Renal failure [Recovered/Resolved with Sequelae]
  - Sepsis [Recovered/Resolved with Sequelae]
  - Peritonitis [Recovered/Resolved with Sequelae]
  - Volvulus [Recovered/Resolved with Sequelae]
